FAERS Safety Report 12251837 (Version 2)
Quarter: 2016Q2

REPORT INFORMATION
  Report Type: Spontaneous
  Country: US (occurrence: US)
  Receive Date: 20160411
  Receipt Date: 20160518
  Transmission Date: 20160815
  Serious: Yes (Other)
  Sender: FDA-Public Use
  Company Number: US-BEH-2016060792

PATIENT
  Sex: Female
  Weight: 65 kg

DRUGS (16)
  1. HIZENTRA [Suspect]
     Active Substance: HUMAN IMMUNOGLOBULIN G
     Indication: IMMUNODEFICIENCY COMMON VARIABLE
  2. METFORMIN [Concomitant]
     Active Substance: METFORMIN HYDROCHLORIDE
  3. QVAR [Concomitant]
     Active Substance: BECLOMETHASONE DIPROPIONATE
  4. ASPIRIN. [Concomitant]
     Active Substance: ASPIRIN
  5. QNASL [Concomitant]
     Active Substance: BECLOMETHASONE DIPROPIONATE
  6. HIZENTRA [Suspect]
     Active Substance: HUMAN IMMUNOGLOBULIN G
     Route: 058
  7. FENOFIBRATE. [Concomitant]
     Active Substance: FENOFIBRATE
  8. OMEPRAZOLE. [Concomitant]
     Active Substance: OMEPRAZOLE
  9. LIDOCAINE. [Concomitant]
     Active Substance: LIDOCAINE
  10. CELEBREX [Concomitant]
     Active Substance: CELECOXIB
  11. LOSARTAN. [Concomitant]
     Active Substance: LOSARTAN
  12. MUPIROCIN. [Concomitant]
     Active Substance: MUPIROCIN
  13. OCEAN NASAL [Concomitant]
  14. HIZENTRA [Suspect]
     Active Substance: HUMAN IMMUNOGLOBULIN G
  15. EPIPEN [Concomitant]
     Active Substance: EPINEPHRINE
  16. VITAMIN D3 [Concomitant]
     Active Substance: CHOLECALCIFEROL

REACTIONS (2)
  - Fatigue [Unknown]
  - Staphylococcal infection [Unknown]
